FAERS Safety Report 8548026-0 (Version None)
Quarter: 2012Q3

REPORT INFORMATION
  Report Type: 
  Country: None (occurrence: None)
  Receive Date: 20120730
  Receipt Date: 20120726
  Transmission Date: 20120928
  Serious: Yes (Hospitalization)
  Sender: FDA-Public Use
  Company Number: FR-ROCHE-1087180

PATIENT
  Sex: Male
  Weight: 60 kg

DRUGS (5)
  1. MABTHERA [Suspect]
     Indication: MANTLE CELL LYMPHOMA
     Route: 041
     Dates: start: 20120215, end: 20120422
  2. DEXAMETHASONE [Suspect]
     Indication: MANTLE CELL LYMPHOMA
     Route: 042
     Dates: start: 20120215, end: 20120422
  3. CISPLATIN [Suspect]
     Indication: MANTLE CELL LYMPHOMA
     Route: 042
     Dates: start: 20120215, end: 20120422
  4. CLOPIDOGREL [Concomitant]
  5. CYTARABINE [Suspect]
     Indication: MANTLE CELL LYMPHOMA
     Route: 042
     Dates: start: 20120215, end: 20120422

REACTIONS (3)
  - INTERVERTEBRAL DISCITIS [None]
  - FEBRILE BONE MARROW APLASIA [None]
  - PNEUMONIA [None]
